FAERS Safety Report 25570416 (Version 1)
Quarter: 2025Q3

REPORT INFORMATION
  Report Type: Report from Study
  Country: US (occurrence: US)
  Receive Date: 20250717
  Receipt Date: 20250717
  Transmission Date: 20251020
  Serious: Yes (Hospitalization, Other)
  Sender: ROCHE
  Company Number: US-ROCHE-10000303133

PATIENT
  Age: 73 Year
  Sex: Female
  Weight: 62.5 kg

DRUGS (4)
  1. ITOVEBI [Suspect]
     Active Substance: INAVOLISIB
     Indication: Breast cancer metastatic
     Dosage: TAKE 1 TABLET BY MOUTH ONCE DAILY WITH OR WITHOUT FOOD
     Route: 048
     Dates: start: 20250517
  2. IBRANCE [Concomitant]
     Active Substance: PALBOCICLIB
  3. FULVESTRANT [Concomitant]
     Active Substance: FULVESTRANT
  4. METFORMIN [Concomitant]
     Active Substance: METFORMIN HYDROCHLORIDE

REACTIONS (4)
  - Type 2 diabetes mellitus [Recovered/Resolved]
  - Metabolic acidosis [Unknown]
  - Acute kidney injury [Unknown]
  - Hyperglycaemic hyperosmolar nonketotic syndrome [Unknown]

NARRATIVE: CASE EVENT DATE: 20250521
